FAERS Safety Report 4393447-3 (Version None)
Quarter: 2004Q3

REPORT INFORMATION
  Report Type: 
  Country: None (occurrence: None)
  Receive Date: 20040701
  Receipt Date: 20040618
  Transmission Date: 20050211
  Serious: Yes (Hospitalization)
  Sender: FDA-Public Use
  Company Number: 2004220081DE

PATIENT
  Age: 59 Year
  Sex: Female
  Weight: 54 kg

DRUGS (3)
  1. EPIRUBICIN [Suspect]
     Indication: BREAST CANCER FEMALE
     Dosage: 133MG, CYCLE 3, IV
     Route: 042
     Dates: start: 20040420, end: 20040420
  2. CYCLOPHOSPHAMIDE [Suspect]
     Indication: BREAST CANCER FEMALE
     Dosage: 888 MG, CYCLE 3, IV
     Route: 042
     Dates: start: 20040420, end: 20040420
  3. GLYBURIDE [Concomitant]

REACTIONS (3)
  - ANAEMIA [None]
  - GENERAL PHYSICAL HEALTH DETERIORATION [None]
  - PYREXIA [None]
